FAERS Safety Report 20518295 (Version 1)
Quarter: 2022Q1

REPORT INFORMATION
  Report Type: Spontaneous
  Country: US (occurrence: US)
  Receive Date: 20220225
  Receipt Date: 20220225
  Transmission Date: 20220423
  Serious: No
  Sender: FDA-Public Use
  Company Number: US-ESPERIONTHERAPEUTICS-2022USA00188

PATIENT
  Age: 57 Year
  Sex: Male
  Weight: 94.331 kg

DRUGS (4)
  1. NEXLETOL [Suspect]
     Active Substance: BEMPEDOIC ACID
     Indication: Type IV hyperlipidaemia
     Dosage: 180 MILLIGRAM, QOD
     Route: 048
  2. ASPIRIN [Concomitant]
     Active Substance: ASPIRIN
     Dosage: 81 MILLIGRAM, QD
     Route: 048
  3. REPATHA [Concomitant]
     Active Substance: EVOLOCUMAB
     Route: 065
  4. FLUVAL [FLUOXETINE] [Concomitant]
     Dosage: 2 MG/25MG, 3 PER DAY
     Route: 048

REACTIONS (2)
  - Prostatitis [Unknown]
  - Product use issue [Unknown]

NARRATIVE: CASE EVENT DATE: 20210922
